FAERS Safety Report 9753584 (Version 1)
Quarter: 2013Q4

REPORT INFORMATION
  Report Type: Spontaneous
  Country: US (occurrence: US)
  Receive Date: 20131213
  Receipt Date: 20131213
  Transmission Date: 20140711
  Serious: Yes (Hospitalization)
  Sender: FDA-Public Use
  Company Number: US-PFIZER INC-2013355095

PATIENT
  Sex: 0

DRUGS (2)
  1. CELEBREX [Suspect]
     Dosage: 200
  2. LYRICA [Suspect]
     Dosage: 300

REACTIONS (1)
  - Pneumonia [Unknown]
